FAERS Safety Report 7303625-9 (Version None)
Quarter: 2011Q1

REPORT INFORMATION
  Report Type: 
  Country: None (occurrence: None)
  Receive Date: 20110221
  Receipt Date: 20110211
  Transmission Date: 20110831
  Serious: Yes (Hospitalization, Other)
  Sender: FDA-Public Use
  Company Number: AR-AMGEN-ARGSP2011009427

PATIENT
  Sex: Female

DRUGS (4)
  1. PANTOPRAZOLE [Concomitant]
     Dosage: UNK
     Route: 048
  2. LEVOTHYROXINE [Concomitant]
     Indication: THYROID DISORDER
     Dosage: UNK
     Route: 048
  3. SERTRALINE HYDROCHLORIDE [Concomitant]
     Dosage: UNK
     Route: 048
  4. ENBREL [Suspect]
     Indication: RHEUMATOID ARTHRITIS
     Dosage: 50 MG, WEEKLY
     Route: 058
     Dates: start: 20091001

REACTIONS (5)
  - FIBROMYALGIA [None]
  - SYSTEMIC LUPUS ERYTHEMATOSUS [None]
  - PYOTHORAX [None]
  - PNEUMOTHORAX [None]
  - BEDRIDDEN [None]
